FAERS Safety Report 5313831-0 (Version None)
Quarter: 2007Q2

REPORT INFORMATION
  Report Type: 
  Country: None (occurrence: None)
  Receive Date: 20070501
  Receipt Date: 20070427
  Transmission Date: 20071010
  Serious: Yes (Other)
  Sender: FDA-Public Use
  Company Number: US-GLAXOSMITHKLINE-A0649067A

PATIENT
  Age: 68 Year
  Sex: Female

DRUGS (2)
  1. LITHIUM CARBONATE [Suspect]
     Indication: BIPOLAR DISORDER
     Dosage: 450MG TWICE PER DAY
     Route: 048
  2. ASPIRIN [Concomitant]

REACTIONS (3)
  - HYPERTENSION [None]
  - PALPITATIONS [None]
  - THROMBOSIS [None]
